FAERS Safety Report 12303957 (Version 1)
Quarter: 2016Q2

REPORT INFORMATION
  Report Type: Spontaneous
  Country: US (occurrence: None)
  Receive Date: 20160425
  Receipt Date: 20160425
  Transmission Date: 20160815
  Serious: No
  Sender: FDA-Public Use
  Company Number: None

PATIENT
  Age: 33 Year
  Sex: Female

DRUGS (15)
  1. PRENAT PLUS [Concomitant]
  2. MONONESSA [Concomitant]
     Active Substance: ETHINYL ESTRADIOL\NORGESTIMATE
  3. METFORMIN [Concomitant]
     Active Substance: METFORMIN HYDROCHLORIDE
  4. LEUPROLIDE [Concomitant]
     Active Substance: LEUPROLIDE
  5. PHENTERMINE. [Concomitant]
     Active Substance: PHENTERMINE
  6. ESTRADIOL. [Concomitant]
     Active Substance: ESTRADIOL
  7. AMOXICILLIN. [Concomitant]
     Active Substance: AMOXICILLIN
  8. OXYCODONE AND ACETAMINOPHEN [Concomitant]
     Active Substance: ACETAMINOPHEN\OXYCODONE HYDROCHLORIDE
  9. AZELASTINE [Concomitant]
     Active Substance: AZELASTINE
  10. DOCQLACE [Concomitant]
     Active Substance: DOCUSATE SODIUM
  11. NECON [Concomitant]
     Active Substance: ETHINYL ESTRADIOL\NORETHINDRONE
  12. MAKENA [Suspect]
     Active Substance: HYDROXYPROGESTERONE CAPROATE
     Indication: INFERTILITY FEMALE
     Route: 030
     Dates: start: 20160324
  13. LEVOTHYROXIN [Concomitant]
     Active Substance: LEVOTHYROXINE
  14. ONDANCETRON [Concomitant]
  15. DIAZEPAM. [Concomitant]
     Active Substance: DIAZEPAM

REACTIONS (2)
  - Vaginal haemorrhage [None]
  - Uterine contractions during pregnancy [None]

NARRATIVE: CASE EVENT DATE: 201604
